FAERS Safety Report 4815363-2 (Version None)
Quarter: 2005Q4

REPORT INFORMATION
  Report Type: 
  Country: None (occurrence: None)
  Receive Date: 20051027
  Receipt Date: 20051020
  Transmission Date: 20060501
  Serious: Yes (Other)
  Sender: FDA-Public Use
  Company Number: CAR-2005-018

PATIENT
  Age: 74 Year
  Sex: Female
  Weight: 54.4316 kg

DRUGS (9)
  1. CARAFATE [Suspect]
  2. PLAVIX [Suspect]
     Dates: start: 20040101
  3. METOCLOPRAMIDE [Suspect]
  4. PROMETHAZINE [Suspect]
  5. FUROSEMIDE [Suspect]
  6. TIZANIDINE HCL [Suspect]
  7. ZOLPIDEM (AMBIEN) TABLET [Suspect]
  8. PROPOXYPHENE-ACETAMINOPHEN (DARVOCET-N) TABLET [Suspect]
  9. CLOTRIMAZOLE [Suspect]

REACTIONS (2)
  - ABDOMINAL DISCOMFORT [None]
  - STOMACH DISCOMFORT [None]
